FAERS Safety Report 17105887 (Version 1)
Quarter: 2019Q4

REPORT INFORMATION
  Report Type: Spontaneous
  Country: US (occurrence: US)
  Receive Date: 20191203
  Receipt Date: 20191203
  Transmission Date: 20200122
  Serious: No
  Sender: FDA-Public Use
  Company Number: NVSC2019US052996

PATIENT
  Sex: Male

DRUGS (1)
  1. LATANOPROST. [Suspect]
     Active Substance: LATANOPROST
     Indication: PRODUCT USED FOR UNKNOWN INDICATION
     Dosage: 1 GTT
     Route: 047

REACTIONS (5)
  - Ocular hyperaemia [Unknown]
  - Eye pain [Unknown]
  - Swelling face [Unknown]
  - Headache [Unknown]
  - Pain of skin [Unknown]
